FAERS Safety Report 6087734-0 (Version None)
Quarter: 2009Q1

REPORT INFORMATION
  Report Type: 
  Country: None (occurrence: None)
  Receive Date: 20090223
  Receipt Date: 20090210
  Transmission Date: 20090719
  Serious: Yes (Other)
  Sender: FDA-Public Use
  Company Number: US-PFIZER INC-2009168330

PATIENT
  Age: 35 Year
  Sex: Female

DRUGS (7)
  1. CLOZAPINE [Suspect]
     Indication: SCHIZOAFFECTIVE DISORDER
     Dosage: 900 MG, UNK
     Dates: start: 19900101
  2. PHENYTOIN AND PHENYTOIN SODIUM [Suspect]
     Dosage: 400 MG, UNK
  3. SERTRALINE HCL [Suspect]
     Dosage: 25 MG
  4. CLOMIPRAMINE [Suspect]
     Dosage: 350 MG
  5. VALPROATE SODIUM [Suspect]
  6. HALOPERIDOL [Suspect]
     Dosage: 30 MG, UNK
  7. METHYLPHENIDATE [Suspect]
     Dosage: 40 MG, UNK

REACTIONS (1)
  - NEUROLEPTIC MALIGNANT SYNDROME [None]
